FAERS Safety Report 19040546 (Version 4)
Quarter: 2022Q1

REPORT INFORMATION
  Report Type: Report from Study
  Country: DE (occurrence: DE)
  Receive Date: 20210322
  Receipt Date: 20220315
  Transmission Date: 20220423
  Serious: Yes (Other)
  Sender: FDA-Public Use
  Company Number: DE-PFIZER INC-2021207864

PATIENT
  Age: 20 Year
  Sex: Male
  Weight: 78 kg

DRUGS (4)
  1. GEMTUZUMAB OZOGAMICIN [Suspect]
     Active Substance: GEMTUZUMAB OZOGAMICIN
     Indication: Acute myeloid leukaemia
     Dosage: 4.5 MG (3 MG/M2), QD ON DAY 1+4
     Route: 042
     Dates: start: 20210210, end: 20210213
  2. MIDOSTAURIN [Suspect]
     Active Substance: MIDOSTAURIN
     Indication: Acute myeloid leukaemia
     Dosage: 100 MG, DAILY (50 MG BID DAYS 8-21)
     Route: 048
     Dates: start: 20210217, end: 20210222
  3. CYTARABINE [Concomitant]
     Active Substance: CYTARABINE
     Indication: Acute myeloid leukaemia
     Dosage: 410 MG (200 MG/M2), OVER 7 DAYS
     Dates: start: 20210210, end: 20210216
  4. DAUNORUBICIN [Concomitant]
     Active Substance: DAUNORUBICIN
     Indication: Acute myeloid leukaemia
     Dosage: 123 MG (60 MG/M2) ON 3 DAYS
     Dates: start: 20210210, end: 20210212

REACTIONS (1)
  - Neutropenic colitis [Recovered/Resolved]

NARRATIVE: CASE EVENT DATE: 20210223
